FAERS Safety Report 18344099 (Version 1)
Quarter: 2020Q4

REPORT INFORMATION
  Report Type: Spontaneous
  Country: US (occurrence: US)
  Receive Date: 20201002
  Receipt Date: 20201002
  Transmission Date: 20210114
  Serious: Yes (Hospitalization)
  Sender: FDA-Public Use
  Company Number: None

PATIENT
  Age: 54 Year
  Sex: Female

DRUGS (10)
  1. ATOVAQUONE. [Suspect]
     Active Substance: ATOVAQUONE
  2. NULOJIX [Suspect]
     Active Substance: BELATACEPT
  3. PREDNISONE. [Suspect]
     Active Substance: PREDNISONE
  4. METFORMIN [Suspect]
     Active Substance: METFORMIN HYDROCHLORIDE
  5. SMZ/TMP DS [Suspect]
     Active Substance: SULFAMETHOXAZOLE\TRIMETHOPRIM
  6. MYCOPHENOLATE, 250GM [Suspect]
     Active Substance: MYCOPHENOLATE MOFETIL
     Indication: RENAL TRANSPLANT
     Route: 048
     Dates: start: 20180228
  7. TENOFOVIR [Suspect]
     Active Substance: TENOFOVIR
  8. VITAMIN D3 [Suspect]
     Active Substance: CHOLECALCIFEROL
  9. FOLIC ACID. [Suspect]
     Active Substance: FOLIC ACID
  10. LISINOPRIL. [Suspect]
     Active Substance: LISINOPRIL

REACTIONS (2)
  - Therapy interrupted [None]
  - Infection [None]

NARRATIVE: CASE EVENT DATE: 20200930
